FAERS Safety Report 10336470 (Version 1)
Quarter: 2014Q3

REPORT INFORMATION
  Report Type: Spontaneous
  Country: US (occurrence: US)
  Receive Date: 20140723
  Receipt Date: 20140723
  Transmission Date: 20150326
  Serious: No
  Sender: FDA-Public Use
  Company Number: US-BRISTOL-MYERS SQUIBB COMPANY-20147013

PATIENT
  Age: 65 Year
  Sex: Female
  Weight: 81.63 kg

DRUGS (9)
  1. FOLIC ACID. [Concomitant]
     Active Substance: FOLIC ACID
  2. VITAMIN B12 [Concomitant]
     Active Substance: CYANOCOBALAMIN
     Dosage: INJECTION
  3. VITAMIN D [Concomitant]
     Active Substance: CHOLECALCIFEROL
  4. KLONOPIN [Concomitant]
     Active Substance: CLONAZEPAM
  5. FOCALIN [Concomitant]
     Active Substance: DEXMETHYLPHENIDATE HYDROCHLORIDE
     Dosage: ER
  6. COUMADIN [Suspect]
     Active Substance: WARFARIN SODIUM
     Indication: THROMBOSIS
     Dosage: 2007 : FOR SIX MONTHS?19AUG2013:JAN2014
     Dates: start: 2007
  7. DEXLANSOPRAZOLE [Concomitant]
     Active Substance: DEXLANSOPRAZOLE
  8. COUMADIN [Suspect]
     Active Substance: WARFARIN SODIUM
     Indication: DEEP VEIN THROMBOSIS
     Dosage: 2007 : FOR SIX MONTHS?19AUG2013:JAN2014
     Dates: start: 2007
  9. SYNTHROID [Concomitant]
     Active Substance: LEVOTHYROXINE SODIUM

REACTIONS (2)
  - Platelet count decreased [Unknown]
  - International normalised ratio fluctuation [Unknown]
